FAERS Safety Report 13052209 (Version 8)
Quarter: 2022Q1

REPORT INFORMATION
  Report Type: Spontaneous
  Country: FR (occurrence: FR)
  Receive Date: 20161221
  Receipt Date: 20220104
  Transmission Date: 20220423
  Serious: Yes (Other)
  Sender: FDA-Public Use
  Company Number: FR-MYLANLABS-2016M1045747

PATIENT
  Age: 73 Year
  Sex: Female

DRUGS (10)
  1. VERAPAMIL [Suspect]
     Active Substance: VERAPAMIL HYDROCHLORIDE
     Dosage: UNK
     Dates: start: 201610
  2. VERAPAMIL [Suspect]
     Active Substance: VERAPAMIL HYDROCHLORIDE
     Dosage: UNK
  3. VERAPAMIL [Suspect]
     Active Substance: VERAPAMIL HYDROCHLORIDE
     Dosage: 1 DOSAGE FORM, QD
     Dates: start: 20180614
  4. VERAPAMIL [Suspect]
     Active Substance: VERAPAMIL HYDROCHLORIDE
     Dosage: AT 160 AND EVEN 180 MG DAILY
  5. VERAPAMIL [Suspect]
     Active Substance: VERAPAMIL HYDROCHLORIDE
     Dosage: DID NOT TAKE 120 MG OVER 24 HOURS (1/8 OR ??? BEFORE).
  6. CORDARONE [Suspect]
     Active Substance: AMIODARONE HYDROCHLORIDE
     Indication: Product used for unknown indication
     Dosage: 200 MILLIGRAM
  7. ACETYLLEUCINE, L- [Concomitant]
     Active Substance: ACETYLLEUCINE, L-
     Indication: Dizziness
     Dosage: UNK
     Dates: start: 2016
  8. URSODIOL [Concomitant]
     Active Substance: URSODIOL
     Indication: Cholelithiasis
     Dosage: UNK
  9. AMBROXOL HYDROCHLORIDE [Concomitant]
     Active Substance: AMBROXOL HYDROCHLORIDE
     Indication: Bronchitis chronic
     Dosage: UNK
     Dates: start: 2010
  10. PRISTINAMYCIN [Concomitant]
     Active Substance: PRISTINAMYCIN
     Indication: Prophylaxis
     Dosage: UNK

REACTIONS (36)
  - Atrial fibrillation [Not Recovered/Not Resolved]
  - Weight decreased [Unknown]
  - Hallucination [Unknown]
  - Dental caries [Unknown]
  - Enuresis [Unknown]
  - Necrosis [Unknown]
  - Hypoacusis [Unknown]
  - Balance disorder [Unknown]
  - Nocturia [Unknown]
  - Neuromuscular pain [Unknown]
  - Arthralgia [Unknown]
  - Osteoarthritis [Unknown]
  - Hypoaesthesia [Unknown]
  - Asthenia [Unknown]
  - Hepatic pain [Unknown]
  - Malaise [Unknown]
  - Dehydration [Unknown]
  - Cough [Unknown]
  - Urinary incontinence [Unknown]
  - Insomnia [Unknown]
  - Vision blurred [Unknown]
  - Muscular weakness [Unknown]
  - Bradycardia [Unknown]
  - Headache [Unknown]
  - Tinnitus [Unknown]
  - Constipation [Unknown]
  - Dizziness [Unknown]
  - Nausea [Unknown]
  - Vomiting [Unknown]
  - Somnolence [Unknown]
  - Hypotension [Unknown]
  - Fatigue [Unknown]
  - Intentional product misuse [Unknown]
  - Wrong technique in product usage process [Unknown]
  - Product use issue [Unknown]
  - Eczema [Unknown]

NARRATIVE: CASE EVENT DATE: 20180327
